FAERS Safety Report 8499617-7 (Version None)
Quarter: 2012Q3

REPORT INFORMATION
  Report Type: 
  Country: None (occurrence: None)
  Receive Date: 20120710
  Receipt Date: 20120628
  Transmission Date: 20120928
  Serious: Yes (Other)
  Sender: FDA-Public Use
  Company Number: SE-ASTELLAS-2012EU004846

PATIENT

DRUGS (1)
  1. PROGRAF [Suspect]
     Indication: AUTOIMMUNE HEPATITIS
     Dosage: UNK
     Route: 048

REACTIONS (2)
  - OFF LABEL USE [None]
  - INFLAMMATORY BOWEL DISEASE [None]
